FAERS Safety Report 10168514 (Version 2)
Quarter: 2014Q2

REPORT INFORMATION
  Report Type: Spontaneous
  Country: US (occurrence: US)
  Receive Date: 20140513
  Receipt Date: 20140609
  Transmission Date: 20141212
  Serious: Yes (Death, Hospitalization, Other)
  Sender: FDA-Public Use
  Company Number: US-PFIZER INC-2014124894

PATIENT
  Age: 75 Year
  Sex: Female

DRUGS (1)
  1. BOSULIF [Suspect]
     Indication: CHRONIC MYELOID LEUKAEMIA
     Dosage: 500 MG, DAILY
     Route: 048
     Dates: start: 20140411, end: 20140425

REACTIONS (13)
  - Respiratory failure [Fatal]
  - Pneumonia aspiration [Fatal]
  - Cellulitis [Recovering/Resolving]
  - Renal failure [Unknown]
  - Pancytopenia [Unknown]
  - Anaemia [Unknown]
  - Atrial fibrillation [Unknown]
  - Cardiac failure congestive [Unknown]
  - Fluid overload [Unknown]
  - Adrenal mass [Unknown]
  - Renal disorder [Unknown]
  - Pain [Unknown]
  - Fatigue [Unknown]
